FAERS Safety Report 10052738 (Version 1)
Quarter: 2014Q2

REPORT INFORMATION
  Report Type: Spontaneous
  Country: PH (occurrence: PH)
  Receive Date: 20140402
  Receipt Date: 20140402
  Transmission Date: 20141212
  Serious: Yes (Death)
  Sender: FDA-Public Use
  Company Number: PH-SA-2014SA037070

PATIENT
  Age: 34 Year
  Sex: Female
  Weight: 48 kg

DRUGS (3)
  1. THYMOGLOBULINE [Suspect]
     Indication: RENAL TRANSPLANT
     Route: 042
     Dates: start: 20140220, end: 20140221
  2. TACROLIMUS [Suspect]
     Indication: PRODUCT USED FOR UNKNOWN INDICATION
     Dosage: PRODUCT START DATE 21-FEB-2014
     Route: 065
     Dates: start: 201402, end: 201402
  3. CELLCEPT [Concomitant]
     Dates: start: 20140219

REACTIONS (1)
  - Respiratory distress [Fatal]
